FAERS Safety Report 6295367-6 (Version None)
Quarter: 2009Q3

REPORT INFORMATION
  Report Type: 
  Country: None (occurrence: None)
  Receive Date: 20090803
  Receipt Date: 20090722
  Transmission Date: 20100115
  Serious: Yes (Death)
  Sender: FDA-Public Use
  Company Number: US-SANOFI-SYNTHELABO-A03200900282

PATIENT
  Age: 25 Year
  Sex: Male

DRUGS (3)
  1. OTC STIMULANT [Concomitant]
     Indication: DRUG USE FOR UNKNOWN INDICATION
     Dosage: UNK
     Route: 065
  2. ALCOHOL [Suspect]
     Indication: DRUG USE FOR UNKNOWN INDICATION
     Dosage: UNK
     Route: 065
  3. AMBIEN [Suspect]
     Indication: SLEEP DISORDER
     Dosage: UNK
     Route: 048
     Dates: start: 20060101

REACTIONS (5)
  - AGGRESSION [None]
  - COMPLETED SUICIDE [None]
  - EATING DISORDER [None]
  - GUN SHOT WOUND [None]
  - WEIGHT INCREASED [None]
